FAERS Safety Report 8422349-8 (Version None)
Quarter: 2012Q2

REPORT INFORMATION
  Report Type: 
  Country: None (occurrence: None)
  Receive Date: 20120608
  Receipt Date: 20120530
  Transmission Date: 20120825
  Serious: Yes (Other)
  Sender: FDA-Public Use
  Company Number: US-ASTRAZENECA-2012SE25810

PATIENT
  Age: 69 Year
  Sex: Female

DRUGS (3)
  1. CRESTOR [Suspect]
     Route: 048
     Dates: end: 20110822
  2. CRESTOR [Suspect]
     Route: 048
  3. NEXIUM [Suspect]
     Route: 048

REACTIONS (9)
  - CORONARY ARTERY DISEASE [None]
  - CHEST PAIN [None]
  - THERAPEUTIC RESPONSE UNEXPECTED [None]
  - MUSCLE SPASMS [None]
  - CARDIAC DISORDER [None]
  - DIABETES MELLITUS [None]
  - LIPIDS INCREASED [None]
  - ADVERSE EVENT [None]
  - THYROID CANCER [None]
